FAERS Safety Report 24827670 (Version 1)
Quarter: 2025Q1

REPORT INFORMATION
  Report Type: Spontaneous
  Country: FR (occurrence: FR)
  Receive Date: 20250109
  Receipt Date: 20250109
  Transmission Date: 20250408
  Serious: Yes (Hospitalization)
  Sender: JAZZ
  Company Number: None

PATIENT

DRUGS (2)
  1. ZEPZELCA [Suspect]
     Active Substance: LURBINECTEDIN
     Indication: Neuroendocrine carcinoma metastatic
     Route: 042
     Dates: start: 20240916, end: 20240916
  2. ZEPZELCA [Suspect]
     Active Substance: LURBINECTEDIN
     Route: 042
     Dates: start: 20241017, end: 20241017

REACTIONS (2)
  - Musculoskeletal pain [Recovered/Resolved]
  - Musculoskeletal chest pain [Recovered/Resolved]

NARRATIVE: CASE EVENT DATE: 20240916
